FAERS Safety Report 16226505 (Version 2)
Quarter: 2019Q2

REPORT INFORMATION
  Report Type: Spontaneous
  Country: US (occurrence: US)
  Receive Date: 20190423
  Receipt Date: 20190506
  Transmission Date: 20190711
  Serious: Yes (Other)
  Sender: FDA-Public Use
  Company Number: US-PFIZER INC-2019164277

PATIENT
  Age: 50 Year
  Sex: Male
  Weight: 104.31 kg

DRUGS (3)
  1. SOMAVERT [Suspect]
     Active Substance: PEGVISOMANT
     Indication: HORMONE LEVEL ABNORMAL
  2. SOMAVERT [Suspect]
     Active Substance: PEGVISOMANT
     Indication: HYPOAESTHESIA
  3. SOMAVERT [Suspect]
     Active Substance: PEGVISOMANT
     Indication: HEADACHE
     Dosage: 20 MG, DAILY

REACTIONS (2)
  - Neoplasm progression [Unknown]
  - Visual impairment [Unknown]
